FAERS Safety Report 13521104 (Version 2)
Quarter: 2017Q2

REPORT INFORMATION
  Report Type: Report from Study
  Country: None (occurrence: BR)
  Receive Date: 20170508
  Receipt Date: 20170509
  Transmission Date: 20170830
  Serious: Yes (Other)
  Sender: FDA-Public Use
  Company Number: BR-ABBVIE-16K-020-1788783-00

PATIENT
  Age: 63 Year
  Sex: Male
  Weight: 60 kg

DRUGS (4)
  1. HUMIRA [Suspect]
     Active Substance: ADALIMUMAB
     Route: 058
     Dates: start: 20161116, end: 20161116
  2. HUMIRA [Suspect]
     Active Substance: ADALIMUMAB
     Indication: COLITIS ULCERATIVE
     Dosage: LOADING DOSE
     Route: 058
     Dates: start: 20161020, end: 20161020
  3. KETOCONAZOLE. [Concomitant]
     Active Substance: KETOCONAZOLE
     Indication: PRURITUS
     Route: 061
     Dates: start: 20161107, end: 20161112
  4. HUMIRA [Suspect]
     Active Substance: ADALIMUMAB
     Route: 058
     Dates: start: 201611, end: 201704

REACTIONS (19)
  - Asthenia [Unknown]
  - Rash papular [Not Recovered/Not Resolved]
  - Nausea [Unknown]
  - Anal fistula [Not Recovered/Not Resolved]
  - Impaired healing [Unknown]
  - Malaise [Unknown]
  - Pruritus [Recovered/Resolved]
  - Frequent bowel movements [Unknown]
  - Dyspepsia [Unknown]
  - Rectal haemorrhage [Recovering/Resolving]
  - Anal infection [Recovering/Resolving]
  - Purulence [Unknown]
  - Dizziness [Unknown]
  - Incorrect dose administered [Unknown]
  - Immunodeficiency [Unknown]
  - Pruritus generalised [Not Recovered/Not Resolved]
  - Wound [Not Recovered/Not Resolved]
  - Diarrhoea haemorrhagic [Unknown]
  - Vomiting [Unknown]

NARRATIVE: CASE EVENT DATE: 2016
